FAERS Safety Report 16877678 (Version 1)
Quarter: 2019Q4

REPORT INFORMATION
  Report Type: Spontaneous
  Country: US (occurrence: US)
  Receive Date: 20191002
  Receipt Date: 20191002
  Transmission Date: 20200122
  Serious: Yes (Hospitalization)
  Sender: FDA-Public Use
  Company Number: None

PATIENT
  Age: 50 Year
  Sex: Female
  Weight: 108 kg

DRUGS (10)
  1. ACETAMINOPHEN 1G [Concomitant]
     Dates: start: 20181029, end: 20181029
  2. MIDAZOLAM 2MG [Concomitant]
     Dates: start: 20181029, end: 20181029
  3. ZEMURON 50MG [Concomitant]
     Dates: start: 20181029, end: 20181029
  4. GABAPENTIN 600MG [Concomitant]
     Active Substance: GABAPENTIN
     Dates: start: 20181029, end: 20181029
  5. ONDANSETRON 4MG [Concomitant]
     Active Substance: ONDANSETRON
     Dates: start: 20181029, end: 20181029
  6. LIDOCAINE. [Suspect]
     Active Substance: LIDOCAINE
     Indication: POSTOPERATIVE ANALGESIA
     Route: 041
     Dates: start: 20181029, end: 20181029
  7. DEXAMETHASONE 8MG [Concomitant]
     Dates: start: 20181029, end: 20181029
  8. CELECOXIB 200MG [Concomitant]
     Active Substance: CELECOXIB
     Dates: start: 20181029, end: 20181029
  9. FENTANYL 100 MCG [Concomitant]
     Active Substance: FENTANYL
     Dates: start: 20181029, end: 20181029
  10. PROPOFOL 200MG [Concomitant]
     Dates: start: 20181029, end: 20181029

REACTIONS (1)
  - Diplopia [None]

NARRATIVE: CASE EVENT DATE: 20181029
